FAERS Safety Report 7338839-5 (Version None)
Quarter: 2011Q1

REPORT INFORMATION
  Report Type: 
  Country: None (occurrence: None)
  Receive Date: 20110308
  Receipt Date: 20100301
  Transmission Date: 20110831
  Serious: Yes (Congenital Anomaly)
  Sender: FDA-Public Use
  Company Number: FR-EISAI INC-E2090-01510-SPO-FR

PATIENT

DRUGS (2)
  1. ZONEGRAN [Suspect]
     Route: 064
     Dates: start: 20100101
  2. DEPAKENE [Concomitant]
     Route: 064

REACTIONS (1)
  - CONGENITAL ANOMALY [None]
